FAERS Safety Report 6116938-3 (Version None)
Quarter: 2009Q1

REPORT INFORMATION
  Report Type: 
  Country: None (occurrence: None)
  Receive Date: 20090314
  Receipt Date: 20090105
  Transmission Date: 20090719
  Serious: No
  Sender: FDA-Public Use
  Company Number: US-ABBOTT-09P-163-0495712-00

PATIENT
  Sex: Female
  Weight: 49.94 kg

DRUGS (7)
  1. HUMIRA [Suspect]
     Indication: CROHN'S DISEASE
     Route: 058
     Dates: start: 20081122
  2. METHOTREXATE [Concomitant]
     Indication: CROHN'S DISEASE
     Route: 048
  3. FOLATE [Concomitant]
     Indication: DRUG USE FOR UNKNOWN INDICATION
     Route: 048
  4. PREVACID [Concomitant]
     Indication: DRUG USE FOR UNKNOWN INDICATION
     Route: 048
  5. MIRALAX [Concomitant]
     Indication: DRUG USE FOR UNKNOWN INDICATION
  6. OTHER UNKNOWN PRESCRIPTION MEDICATIONS [Concomitant]
     Indication: DRUG USE FOR UNKNOWN INDICATION
     Route: 048
  7. OTHER UNKNOWN OVER THE COUNTER MEDICATIONS [Concomitant]
     Indication: DRUG USE FOR UNKNOWN INDICATION
     Route: 048

REACTIONS (1)
  - INJECTION SITE HAEMORRHAGE [None]
